FAERS Safety Report 13352567 (Version 1)
Quarter: 2017Q1

REPORT INFORMATION
  Report Type: Spontaneous
  Country: US (occurrence: US)
  Receive Date: 20170320
  Receipt Date: 20170320
  Transmission Date: 20170429
  Serious: No
  Sender: FDA-Public Use
  Company Number: US-ALLERGAN-1651170US

PATIENT
  Sex: Female
  Weight: 76.19 kg

DRUGS (1)
  1. OXYTROL FOR WOMEN [Suspect]
     Active Substance: OXYBUTYNIN
     Indication: POLLAKIURIA
     Dosage: 1 DF, EVERY 4 DAYS
     Route: 062
     Dates: start: 201510, end: 201603

REACTIONS (5)
  - Application site pain [Unknown]
  - Application site irritation [Recovered/Resolved]
  - Application site pruritus [Unknown]
  - Application site erythema [Recovered/Resolved]
  - Drug ineffective [Unknown]
